FAERS Safety Report 17404059 (Version 1)
Quarter: 2020Q1

REPORT INFORMATION
  Report Type: Spontaneous
  Country: IN (occurrence: IN)
  Receive Date: 20200211
  Receipt Date: 20200211
  Transmission Date: 20200409
  Serious: Yes (Death)
  Sender: FDA-Public Use
  Company Number: IN-CELGENEUS-IND-20200202773

PATIENT
  Age: 73 Year
  Sex: Male

DRUGS (11)
  1. ABRAXANE [Suspect]
     Active Substance: PACLITAXEL
     Route: 041
     Dates: start: 20191122, end: 20191122
  2. CARBOPLATIN. [Suspect]
     Active Substance: CARBOPLATIN
     Indication: NON-SMALL CELL LUNG CANCER STAGE IV
     Route: 041
     Dates: start: 20191011, end: 20191011
  3. GRAFEEL [Concomitant]
     Indication: NEUTROPENIA
     Dosage: 300 MICROGRAM
     Route: 058
     Dates: start: 20191026, end: 20191027
  4. GRAFEEL [Concomitant]
     Indication: WHITE BLOOD CELL COUNT
     Dosage: 300 MICROGRAM
     Route: 058
     Dates: start: 20191101, end: 20191103
  5. ABRAXANE [Suspect]
     Active Substance: PACLITAXEL
     Route: 041
     Dates: start: 20191018, end: 20191018
  6. CARBOPLATIN. [Suspect]
     Active Substance: CARBOPLATIN
     Route: 041
     Dates: start: 20191122, end: 20191122
  7. GEMINOR M [Concomitant]
     Indication: DIABETES MELLITUS
     Dosage: DOSE NOT PROVIDED
     Route: 048
     Dates: start: 20190830
  8. ABRAXANE [Suspect]
     Active Substance: PACLITAXEL
     Indication: NON-SMALL CELL LUNG CANCER STAGE IV
     Route: 041
     Dates: start: 20191011, end: 20191011
  9. DURVALUMAB. [Concomitant]
     Active Substance: DURVALUMAB
     Indication: NON-SMALL CELL LUNG CANCER STAGE IV
     Route: 041
     Dates: start: 20191011, end: 20191011
  10. ABRAXANE [Suspect]
     Active Substance: PACLITAXEL
     Route: 041
     Dates: start: 20191025, end: 20191025
  11. DURVALUMAB. [Concomitant]
     Active Substance: DURVALUMAB
     Route: 041
     Dates: start: 20191122, end: 20191122

REACTIONS (1)
  - Asthenia [Fatal]

NARRATIVE: CASE EVENT DATE: 20191102
